FAERS Safety Report 15306121 (Version 7)
Quarter: 2019Q1

REPORT INFORMATION
  Report Type: Spontaneous
  Country: US (occurrence: US)
  Receive Date: 20180822
  Receipt Date: 20190213
  Transmission Date: 20190417
  Serious: No
  Sender: FDA-Public Use
  Company Number: US-PFIZER INC-2018337735

PATIENT
  Age: 63 Year
  Sex: Female

DRUGS (4)
  1. NICOTROL [Suspect]
     Active Substance: NICOTINE
     Indication: SMOKING CESSATION THERAPY
     Dosage: 10 MG, UNK, (90 DAYS)
  2. NICOTROL [Suspect]
     Active Substance: NICOTINE
     Indication: SMOKING CESSATION THERAPY
     Dosage: UNK, AS NEEDED(AS NEEDED 24 HRS A DAY)
     Dates: start: 20180725
  3. NICOTROL [Suspect]
     Active Substance: NICOTINE
     Dosage: 4 MG, UNK
  4. NICOTROL [Suspect]
     Active Substance: NICOTINE
     Dosage: UNK

REACTIONS (3)
  - Product dispensing error [Unknown]
  - Incontinence [Not Recovered/Not Resolved]
  - Lacrimation increased [Not Recovered/Not Resolved]

NARRATIVE: CASE EVENT DATE: 20180725
